FAERS Safety Report 10229096 (Version 2)
Quarter: 2014Q3

REPORT INFORMATION
  Report Type: Spontaneous
  Country: GB (occurrence: GB)
  Receive Date: 20140610
  Receipt Date: 20140702
  Transmission Date: 20150326
  Serious: Yes (Hospitalization)
  Sender: FDA-Public Use
  Company Number: PHHY2014GB068112

PATIENT
  Age: 70 Year
  Sex: Female

DRUGS (10)
  1. OMEPRAZOLE. [Concomitant]
     Active Substance: OMEPRAZOLE
  2. COLCHICINE. [Interacting]
     Active Substance: COLCHICINE
     Indication: GOUT
     Dosage: 500 UG, BID
     Route: 048
     Dates: start: 20140424, end: 20140515
  3. LISINOPRIL. [Concomitant]
     Active Substance: LISINOPRIL
  4. ATORVASTATIN [Suspect]
     Active Substance: ATORVASTATIN
     Indication: MYOCARDIAL ISCHAEMIA
     Dosage: 80 MG, QD AT NIGHT
     Route: 048
     Dates: end: 20140522
  5. WARFARIN [Concomitant]
     Active Substance: WARFARIN
  6. BETAHISTINE [Concomitant]
     Active Substance: BETAHISTINE
     Dosage: 16 MG, TID
  7. FUROSEMIDE. [Concomitant]
     Active Substance: FUROSEMIDE
  8. PREGABALIN. [Concomitant]
     Active Substance: PREGABALIN
  9. AMITRIPTYLINE [Concomitant]
     Active Substance: AMITRIPTYLINE
  10. AMIODARONE [Interacting]
     Active Substance: AMIODARONE

REACTIONS (8)
  - Tremor [Unknown]
  - Myopathy [Recovered/Resolved]
  - Myalgia [Unknown]
  - Vomiting [Recovered/Resolved]
  - Liver function test abnormal [Recovering/Resolving]
  - Renal failure acute [Unknown]
  - Diarrhoea [Recovered/Resolved]
  - Labelled drug-drug interaction medication error [Unknown]

NARRATIVE: CASE EVENT DATE: 20140517
